FAERS Safety Report 5995556-1 (Version None)
Quarter: 2008Q4

REPORT INFORMATION
  Report Type: 
  Country: None (occurrence: None)
  Receive Date: 20081212
  Receipt Date: 20080930
  Transmission Date: 20090506
  Serious: No
  Sender: FDA-Public Use
  Company Number: US-ABBOTT-08P-163-0479109-00

PATIENT
  Sex: Female
  Weight: 97.61 kg

DRUGS (4)
  1. HUMIRA [Suspect]
     Indication: RHEUMATOID ARTHRITIS
     Route: 050
  2. AREVA [Concomitant]
     Indication: RHEUMATOID ARTHRITIS
     Route: 048
  3. NAPROXEN SODIUM [Concomitant]
     Indication: RHEUMATOID ARTHRITIS
     Route: 048
     Dates: end: 20080801
  4. CELECOXIB [Concomitant]
     Indication: RHEUMATOID ARTHRITIS
     Route: 048
     Dates: start: 20080901

REACTIONS (3)
  - CONTUSION [None]
  - TRANSIENT ISCHAEMIC ATTACK [None]
  - VITAMIN D DECREASED [None]
